FAERS Safety Report 7266802-1 (Version None)
Quarter: 2011Q1

REPORT INFORMATION
  Report Type: 
  Country: None (occurrence: None)
  Receive Date: 20110121
  Receipt Date: 20110107
  Transmission Date: 20110831
  Serious: Yes (Hospitalization)
  Sender: FDA-Public Use
  Company Number: IDA-00486

PATIENT
  Age: 83 Year
  Sex: Female

DRUGS (6)
  1. (PROPRANOLOL) [Suspect]
     Indication: OEDEMA
     Dosage: ORAL
     Route: 048
     Dates: start: 19900101
  2. VENALOT (MELILOTUS OFFICINALIS, RUTOSIDE) [Concomitant]
  3. ARIMIDEX [Suspect]
     Indication: BREAST CANCER
     Dosage: ORAL FORMULATION: TABLET
     Route: 048
     Dates: start: 20060101, end: 20090101
  4. SEROQUEL [Suspect]
     Indication: DEMENTIA ALZHEIMER'S TYPE
     Dosage: BID, ORAL FORMULATION: TABLET, ORAL FORMULATION: TABLET SR
     Route: 048
     Dates: start: 20101001
  5. SEROQUEL [Suspect]
     Indication: DEMENTIA ALZHEIMER'S TYPE
     Dosage: BID, ORAL FORMULATION: TABLET, ORAL FORMULATION: TABLET SR
     Route: 048
     Dates: start: 20090101, end: 20101001
  6. DAFLON (DIOSMIN) [Concomitant]

REACTIONS (8)
  - HEPATOMEGALY [None]
  - OFF LABEL USE [None]
  - DYSPEPSIA [None]
  - HEPATIC CIRRHOSIS [None]
  - CHOLELITHIASIS [None]
  - INTENTIONAL DRUG MISUSE [None]
  - BREAST CANCER [None]
  - DEMENTIA ALZHEIMER'S TYPE [None]
